FAERS Safety Report 15111940 (Version 2)
Quarter: 2018Q3

REPORT INFORMATION
  Report Type: Spontaneous
  Country: FR (occurrence: FR)
  Receive Date: 20180705
  Receipt Date: 20180713
  Transmission Date: 20181010
  Serious: Yes (Other)
  Sender: FDA-Public Use
  Company Number: FR-OTSUKA-2018_018444

PATIENT
  Age: 42 Year
  Sex: Female

DRUGS (1)
  1. DECITABINE. [Suspect]
     Active Substance: DECITABINE
     Indication: ACUTE MYELOID LEUKAEMIA
     Dosage: UNK
     Route: 042
     Dates: start: 20170706, end: 20170813

REACTIONS (1)
  - Organising pneumonia [Recovered/Resolved]

NARRATIVE: CASE EVENT DATE: 20170721
